FAERS Safety Report 24922741 (Version 3)
Quarter: 2025Q1

REPORT INFORMATION
  Report Type: Spontaneous
  Country: PT (occurrence: PT)
  Receive Date: 20250204
  Receipt Date: 20250224
  Transmission Date: 20250409
  Serious: Yes (Death, Other)
  Sender: GILEAD
  Company Number: PT-GILEAD-2025-0701941

PATIENT
  Age: 54 Year
  Sex: Male

DRUGS (1)
  1. LENACAPAVIR [Suspect]
     Active Substance: LENACAPAVIR
     Indication: HIV infection
     Route: 065
     Dates: start: 20231127

REACTIONS (1)
  - Bladder transitional cell carcinoma [Fatal]

NARRATIVE: CASE EVENT DATE: 20240501
